FAERS Safety Report 12360190 (Version 3)
Quarter: 2016Q2

REPORT INFORMATION
  Report Type: Spontaneous
  Country: FR (occurrence: FR)
  Receive Date: 20160512
  Receipt Date: 20160516
  Transmission Date: 20160815
  Serious: Yes (Hospitalization, Other)
  Sender: FDA-Public Use
  Company Number: FR-PFIZER INC-2016243116

PATIENT
  Age: 51 Year
  Sex: Female

DRUGS (4)
  1. SUTENT [Suspect]
     Active Substance: SUNITINIB MALATE
     Dosage: 37.5 MG, 1X/DAY
     Route: 048
     Dates: start: 20151214
  2. CATAPRESSAN /00171101/ [Concomitant]
     Active Substance: CLONIDINE
     Dosage: UNK
     Route: 048
  3. SUTENT [Suspect]
     Active Substance: SUNITINIB MALATE
     Indication: GASTROINTESTINAL STROMAL TUMOUR
     Dosage: 37.5 MG, 1X/DAY
     Route: 048
     Dates: start: 20101030, end: 20150930
  4. SUTENT [Suspect]
     Active Substance: SUNITINIB MALATE
     Dosage: 37.5 MG, 1X/DAY
     Route: 048
     Dates: start: 2015, end: 20151104

REACTIONS (12)
  - Pyrexia [Unknown]
  - General physical health deterioration [Unknown]
  - Pleural effusion [Recovered/Resolved]
  - Pain [Unknown]
  - Pericardial effusion [Unknown]
  - Pleurisy [Unknown]
  - Disease progression [Unknown]
  - Ascites [Unknown]
  - Gastrointestinal stromal tumour [Unknown]
  - Colitis [Unknown]
  - Generalised oedema [Unknown]
  - Blood pressure increased [Unknown]

NARRATIVE: CASE EVENT DATE: 2015
